FAERS Safety Report 12486415 (Version 3)
Quarter: 2018Q2

REPORT INFORMATION
  Report Type: Spontaneous
  Country: US (occurrence: US)
  Receive Date: 20160621
  Receipt Date: 20180425
  Transmission Date: 20180711
  Serious: No
  Sender: FDA-Public Use
  Company Number: US-PFIZER INC-2016304508

PATIENT
  Age: 45 Year
  Sex: Female
  Weight: 57 kg

DRUGS (7)
  1. CALCIUM [Concomitant]
     Active Substance: CALCIUM
     Dosage: UNK
  2. PROTONIX [Concomitant]
     Active Substance: PANTOPRAZOLE SODIUM
     Dosage: 40 MG, UNK
  3. MEDROL [Concomitant]
     Active Substance: METHYLPREDNISOLONE
     Dosage: 4 MG, 2X/DAY
  4. TORADOL [Concomitant]
     Active Substance: KETOROLAC TROMETHAMINE
     Dosage: UNK
  5. METHOTREXATE SODIUM. [Suspect]
     Active Substance: METHOTREXATE SODIUM
     Indication: RHEUMATOID ARTHRITIS
     Dosage: UNK
  6. TYLENOL [Concomitant]
     Active Substance: ACETAMINOPHEN
     Dosage: UNK, AS NEEDED
  7. RITUXAN [Concomitant]
     Active Substance: RITUXIMAB
     Dosage: UNK

REACTIONS (12)
  - Decreased appetite [Unknown]
  - Nausea [Unknown]
  - Electrocardiogram abnormal [Unknown]
  - Dysphagia [Recovering/Resolving]
  - Increased viscosity of bronchial secretion [Unknown]
  - Cough [Unknown]
  - Drug ineffective [Unknown]
  - Weight decreased [Unknown]
  - Diarrhoea [Unknown]
  - Chest discomfort [Unknown]
  - Pain [Unknown]
  - Fatigue [Unknown]
